FAERS Safety Report 13184342 (Version 2)
Quarter: 2017Q1

REPORT INFORMATION
  Report Type: Spontaneous
  Country: GB (occurrence: GB)
  Receive Date: 20170203
  Receipt Date: 20170221
  Transmission Date: 20170428
  Serious: Yes (Other)
  Sender: FDA-Public Use
  Company Number: GB-BRISTOL-MYERS SQUIBB COMPANY-BMS-2017-007741

PATIENT
  Age: 29 Year
  Sex: Male
  Weight: 133 kg

DRUGS (2)
  1. ARIPIPRAZOLE. [Suspect]
     Active Substance: ARIPIPRAZOLE
     Indication: BIPOLAR DISORDER
     Dosage: 10 MG, UNK
     Route: 048
     Dates: start: 20161004, end: 20161110
  2. ARIPIPRAZOLE. [Suspect]
     Active Substance: ARIPIPRAZOLE
     Indication: DEPRESSION
     Route: 065

REACTIONS (5)
  - Prescribed underdose [Unknown]
  - Dyspnoea [Unknown]
  - Chest pain [Unknown]
  - Bundle branch block right [Recovered/Resolved]
  - Heart rate increased [Unknown]

NARRATIVE: CASE EVENT DATE: 20161103
